FAERS Safety Report 17086161 (Version 1)
Quarter: 2019Q4

REPORT INFORMATION
  Report Type: Spontaneous
  Country: US (occurrence: US)
  Receive Date: 20191128
  Receipt Date: 20191128
  Transmission Date: 20200122
  Serious: No
  Sender: FDA-Public Use
  Company Number: US-UCBSA-2018037884

PATIENT
  Age: 70 Year
  Sex: Female

DRUGS (2)
  1. BRIVIACT [Suspect]
     Active Substance: BRIVARACETAM
     Indication: SEIZURE PROPHYLAXIS
     Dosage: 100 MG, 2X/DAY (BID)
     Dates: start: 20180816
  2. BRIVIACT [Suspect]
     Active Substance: BRIVARACETAM
     Indication: OFF LABEL USE

REACTIONS (2)
  - Feeling drunk [Unknown]
  - Off label use [Unknown]

NARRATIVE: CASE EVENT DATE: 20180816
